FAERS Safety Report 18043478 (Version 1)
Quarter: 2020Q3

REPORT INFORMATION
  Report Type: Spontaneous
  Country: CN (occurrence: CN)
  Receive Date: 20200720
  Receipt Date: 20200720
  Transmission Date: 20201103
  Serious: Yes (Other)
  Sender: FDA-Public Use
  Company Number: CN-ROCHE-2643551

PATIENT
  Age: 52 Year
  Sex: Female

DRUGS (15)
  1. OXALIPLATIN. [Concomitant]
     Active Substance: OXALIPLATIN
     Indication: COLON CANCER METASTATIC
  2. CALCIUM FOLINATE [Concomitant]
     Active Substance: LEUCOVORIN CALCIUM
     Indication: METASTASES TO LUNG
  3. AVASTIN [Suspect]
     Active Substance: BEVACIZUMAB
     Indication: METASTASES TO LUNG
  4. REGORAFENIB. [Concomitant]
     Active Substance: REGORAFENIB
     Indication: METASTASES TO LUNG
     Route: 048
  5. CAPECITABINE. [Concomitant]
     Active Substance: CAPECITABINE
     Indication: COLON CANCER METASTATIC
     Dosage: FOR 2 DAYS
     Route: 048
  6. FLUOROURACIL. [Concomitant]
     Active Substance: FLUOROURACIL
     Indication: COLON CANCER METASTATIC
  7. FLUOROURACIL. [Concomitant]
     Active Substance: FLUOROURACIL
     Indication: METASTASES TO LUNG
  8. CALCIUM FOLINATE [Concomitant]
     Active Substance: LEUCOVORIN CALCIUM
     Indication: COLON CANCER METASTATIC
  9. OXALIPLATIN. [Concomitant]
     Active Substance: OXALIPLATIN
     Indication: METASTASES TO LUNG
  10. IRINOTECAN [Concomitant]
     Active Substance: IRINOTECAN
     Indication: COLON CANCER METASTATIC
  11. REGORAFENIB. [Concomitant]
     Active Substance: REGORAFENIB
     Indication: COLON CANCER METASTATIC
     Route: 048
  12. CAPECITABINE. [Concomitant]
     Active Substance: CAPECITABINE
     Indication: METASTASES TO LUNG
  13. AVASTIN [Suspect]
     Active Substance: BEVACIZUMAB
     Indication: COLON CANCER METASTATIC
     Route: 065
     Dates: start: 20181223
  14. IRINOTECAN [Concomitant]
     Active Substance: IRINOTECAN
     Indication: METASTASES TO LUNG
  15. REGORAFENIB. [Concomitant]
     Active Substance: REGORAFENIB
     Dosage: 11 MAR 2020 AND 08 APR 2020
     Route: 048

REACTIONS (4)
  - Gastrointestinal disorder [Unknown]
  - Myocardial ischaemia [Unknown]
  - Myelosuppression [Unknown]
  - Pneumonia [Unknown]
